FAERS Safety Report 4684296-7 (Version None)
Quarter: 2005Q2

REPORT INFORMATION
  Report Type: 
  Country: None (occurrence: None)
  Receive Date: 20050531
  Receipt Date: 20040929
  Transmission Date: 20051028
  Serious: Yes (Other)
  Sender: FDA-Public Use
  Company Number: USA040979677

PATIENT
  Age: 26 Year
  Sex: Male

DRUGS (2)
  1. ZYPREXA [Suspect]
     Indication: SCHIZOPHRENIA
     Dosage: 30 MG
     Dates: start: 20020101
  2. TYLENOL (CAPLET) [Concomitant]

REACTIONS (2)
  - HEPATIC ENZYME INCREASED [None]
  - PRESCRIBED OVERDOSE [None]
